FAERS Safety Report 8106448-6 (Version None)
Quarter: 2012Q1

REPORT INFORMATION
  Report Type: 
  Country: None (occurrence: None)
  Receive Date: 20120202
  Receipt Date: 20120130
  Transmission Date: 20120608
  Serious: Yes (Death, Hospitalization)
  Sender: FDA-Public Use
  Company Number: US-CELGENEUS-163-21880-11121192

PATIENT
  Sex: Male
  Weight: 125.7 kg

DRUGS (16)
  1. REVLIMID [Suspect]
     Indication: MULTIPLE MYELOMA
     Dosage: 25 MILLIGRAM
     Route: 048
     Dates: start: 20090301
  2. DEXAMETHASONE [Suspect]
     Indication: MULTIPLE MYELOMA
     Dosage: 40 MILLIGRAM
     Route: 048
     Dates: start: 20110711
  3. ACYCLOVIR [Concomitant]
     Dosage: 200 MILLIGRAM
     Route: 048
  4. POTASSIUM [Concomitant]
     Dosage: 25 MILLIGRAM
     Route: 048
  5. VITAMIN E [Concomitant]
     Dosage: 1000 UNIT
     Route: 048
  6. AMLODIPINE [Concomitant]
     Dosage: 10 MILLIGRAM
     Route: 048
  7. ASPIRIN [Concomitant]
     Dosage: 81 MILLIGRAM
     Route: 048
  8. IRON [Concomitant]
     Dosage: 325 MILLIGRAM
     Route: 048
  9. REVLIMID [Suspect]
     Dosage: 15 MILLIGRAM
     Route: 048
     Dates: start: 20100501
  10. VELCADE [Suspect]
     Indication: MULTIPLE MYELOMA
     Dosage: 1 MILLIGRAM/SQ. METER
     Route: 041
     Dates: start: 20110711
  11. CIPROFLOXACIN [Concomitant]
     Dosage: 100 MILLIGRAM
     Route: 048
  12. PROCRIT [Suspect]
     Dosage: 8571.4286 IU (INTERNATIONAL UNIT)
     Route: 058
     Dates: start: 20111003, end: 20111114
  13. CALCIUM [Concomitant]
     Dosage: 600
     Route: 048
  14. REVLIMID [Suspect]
     Dosage: 15 MILLIGRAM
     Route: 048
     Dates: start: 20110901, end: 20110101
  15. FLONASE [Concomitant]
     Dosage: .05 PERCENT
     Route: 065
  16. GLIPIZIDE [Concomitant]
     Dosage: 10 MILLIGRAM
     Route: 048

REACTIONS (1)
  - MULTIPLE MYELOMA [None]
